FAERS Safety Report 6512420-X (Version None)
Quarter: 2009Q4

REPORT INFORMATION
  Report Type: 
  Country: None (occurrence: None)
  Receive Date: 20091222
  Receipt Date: 20091215
  Transmission Date: 20100525
  Serious: Yes (Disabling)
  Sender: FDA-Public Use
  Company Number: US-BAXTER-2009BH015737

PATIENT
  Age: 61 Year
  Sex: Male
  Weight: 77 kg

DRUGS (26)
  1. HEPARIN SODIUM INJECTION [Suspect]
     Indication: DRUG USE FOR UNKNOWN INDICATION
     Route: 042
     Dates: start: 20080110
  2. HEPARIN SODIUM INJECTION [Suspect]
     Route: 042
     Dates: start: 20080110
  3. HEPARIN SODIUM INJECTION [Suspect]
     Route: 042
     Dates: start: 20080110
  4. HEPARIN SODIUM INJECTION [Suspect]
     Route: 042
     Dates: start: 20080110
  5. HEPARIN SODIUM INJECTION [Suspect]
     Route: 042
     Dates: start: 20080110
  6. HEPARIN SODIUM INJECTION [Suspect]
     Route: 040
     Dates: start: 20080110
  7. HEPARIN SODIUM INJECTION [Suspect]
     Route: 042
     Dates: start: 20080115
  8. HEPARIN SODIUM INJECTION [Suspect]
     Route: 042
     Dates: start: 20080116
  9. HEPARIN SODIUM INJECTION [Suspect]
     Route: 042
     Dates: start: 20080117
  10. HEPARIN SODIUM INJECTION [Suspect]
     Route: 042
     Dates: start: 20080118
  11. HEPARIN SODIUM INJECTION [Suspect]
     Route: 042
     Dates: start: 20080119
  12. HEPARIN SODIUM INJECTION [Suspect]
     Route: 042
     Dates: start: 20080120
  13. HEPARIN SODIUM INJECTION [Suspect]
     Route: 042
     Dates: start: 20080121
  14. HEPARIN SODIUM INJECTION [Suspect]
     Route: 042
     Dates: start: 20080122
  15. NAPROXEN [Concomitant]
     Indication: DRUG USE FOR UNKNOWN INDICATION
     Route: 065
  16. CLOPIDOGREL BISULFATE [Concomitant]
     Indication: DRUG USE FOR UNKNOWN INDICATION
     Route: 065
  17. ATENOLOL [Concomitant]
     Indication: DRUG USE FOR UNKNOWN INDICATION
     Route: 065
  18. SIMVASTATIN [Concomitant]
     Indication: DRUG USE FOR UNKNOWN INDICATION
     Route: 065
  19. OMEPRAZOLE [Concomitant]
     Indication: DRUG USE FOR UNKNOWN INDICATION
     Route: 065
  20. ENOXAPARIN [Concomitant]
     Indication: DRUG USE FOR UNKNOWN INDICATION
     Route: 065
  21. METOPROLOL TARTRATE [Concomitant]
     Indication: DRUG USE FOR UNKNOWN INDICATION
     Route: 065
  22. ASPIRIN [Concomitant]
     Indication: DRUG USE FOR UNKNOWN INDICATION
     Route: 065
  23. ASPIRIN [Concomitant]
     Indication: DRUG USE FOR UNKNOWN INDICATION
     Route: 065
  24. LOVENOX [Concomitant]
     Indication: DRUG USE FOR UNKNOWN INDICATION
     Route: 065
  25. NORVASK [Concomitant]
     Indication: DRUG USE FOR UNKNOWN INDICATION
     Route: 065
  26. LASIX [Concomitant]
     Indication: DRUG USE FOR UNKNOWN INDICATION
     Route: 065

REACTIONS (17)
  - ATRIAL FIBRILLATION [None]
  - CARDIAC ARREST [None]
  - CARDIAC FAILURE CHRONIC [None]
  - CARDIAC FAILURE CONGESTIVE [None]
  - CARDIOGENIC SHOCK [None]
  - CARDIOMYOPATHY [None]
  - CORONARY ARTERY OCCLUSION [None]
  - DYSPNOEA [None]
  - HYPOTENSION [None]
  - MITRAL VALVE INCOMPETENCE [None]
  - NOSOCOMIAL INFECTION [None]
  - PLEURAL EFFUSION [None]
  - PNEUMONIA [None]
  - RESPIRATORY FAILURE [None]
  - SINUS ARREST [None]
  - THROMBOSIS IN DEVICE [None]
  - VENTRICULAR TACHYCARDIA [None]
